FAERS Safety Report 25715548 (Version 2)
Quarter: 2025Q3

REPORT INFORMATION
  Report Type: Spontaneous
  Country: JP (occurrence: JP)
  Receive Date: 20250822
  Receipt Date: 20250919
  Transmission Date: 20251021
  Serious: Yes (Other)
  Sender: MYLAN
  Company Number: JP-MYE-2025M1070295AA

PATIENT
  Age: 88 Year
  Sex: Male

DRUGS (24)
  1. ERYTHROCIN STEARATE [Suspect]
     Active Substance: ERYTHROMYCIN STEARATE
     Indication: Product used for unknown indication
     Dosage: 200 MILLIGRAM, TID
     Dates: start: 20250630
  2. ERYTHROCIN STEARATE [Suspect]
     Active Substance: ERYTHROMYCIN STEARATE
     Dosage: 200 MILLIGRAM, TID
     Route: 048
     Dates: start: 20250630
  3. ERYTHROCIN STEARATE [Suspect]
     Active Substance: ERYTHROMYCIN STEARATE
     Dosage: 200 MILLIGRAM, TID
     Route: 048
     Dates: start: 20250630
  4. ERYTHROCIN STEARATE [Suspect]
     Active Substance: ERYTHROMYCIN STEARATE
     Dosage: 200 MILLIGRAM, TID
     Dates: start: 20250630
  5. URSO [Concomitant]
     Active Substance: URSODIOL
     Indication: Product used for unknown indication
  6. URSO [Concomitant]
     Active Substance: URSODIOL
     Route: 065
  7. URSO [Concomitant]
     Active Substance: URSODIOL
     Route: 065
  8. URSO [Concomitant]
     Active Substance: URSODIOL
  9. FUROSEMIDE [Concomitant]
     Active Substance: FUROSEMIDE
     Indication: Product used for unknown indication
  10. FUROSEMIDE [Concomitant]
     Active Substance: FUROSEMIDE
     Route: 065
  11. FUROSEMIDE [Concomitant]
     Active Substance: FUROSEMIDE
     Route: 065
  12. FUROSEMIDE [Concomitant]
     Active Substance: FUROSEMIDE
  13. THEOPHYLLINE [Concomitant]
     Active Substance: THEOPHYLLINE
     Indication: Product used for unknown indication
  14. THEOPHYLLINE [Concomitant]
     Active Substance: THEOPHYLLINE
     Route: 065
  15. THEOPHYLLINE [Concomitant]
     Active Substance: THEOPHYLLINE
     Route: 065
  16. THEOPHYLLINE [Concomitant]
     Active Substance: THEOPHYLLINE
  17. EPALRESTAT [Concomitant]
     Active Substance: EPALRESTAT
     Indication: Product used for unknown indication
  18. EPALRESTAT [Concomitant]
     Active Substance: EPALRESTAT
     Route: 065
  19. EPALRESTAT [Concomitant]
     Active Substance: EPALRESTAT
     Route: 065
  20. EPALRESTAT [Concomitant]
     Active Substance: EPALRESTAT
  21. MAGNESIUM [Concomitant]
     Active Substance: MAGNESIUM
     Indication: Product used for unknown indication
  22. MAGNESIUM [Concomitant]
     Active Substance: MAGNESIUM
     Route: 065
  23. MAGNESIUM [Concomitant]
     Active Substance: MAGNESIUM
     Route: 065
  24. MAGNESIUM [Concomitant]
     Active Substance: MAGNESIUM

REACTIONS (1)
  - Deafness [Unknown]

NARRATIVE: CASE EVENT DATE: 20250818
